FAERS Safety Report 7561421-1 (Version None)
Quarter: 2011Q2

REPORT INFORMATION
  Report Type: 
  Country: None (occurrence: None)
  Receive Date: 20110621
  Receipt Date: 20110419
  Transmission Date: 20111010
  Serious: No
  Sender: FDA-Public Use
  Company Number: US-ASTRAZENECA-2011SE22420

PATIENT
  Age: 69 Year
  Sex: Male
  Weight: 90.7 kg

DRUGS (2)
  1. PULMICORT RESPULES [Suspect]
     Indication: CHRONIC OBSTRUCTIVE PULMONARY DISEASE
     Route: 055
  2. ALBUTEROL SULFATE AUTOHALER [Concomitant]

REACTIONS (2)
  - DRUG DOSE OMISSION [None]
  - DRUG INEFFECTIVE [None]
